FAERS Safety Report 6208447-8 (Version None)
Quarter: 2009Q2

REPORT INFORMATION
  Report Type: 
  Country: None (occurrence: None)
  Receive Date: 20090522
  Receipt Date: 20090130
  Transmission Date: 20091009
  Serious: No
  Sender: FDA-Public Use
  Company Number: 8042106

PATIENT
  Age: 44 Year
  Sex: Female
  Weight: 180.3 kg

DRUGS (1)
  1. CIMZIA [Suspect]
     Indication: COLITIS ULCERATIVE
     Dosage: 400 MG SC
     Route: 058
     Dates: start: 20090115

REACTIONS (5)
  - BACK PAIN [None]
  - HEADACHE [None]
  - JOINT STIFFNESS [None]
  - NAUSEA [None]
  - OFF LABEL USE [None]
